FAERS Safety Report 8494305-5 (Version None)
Quarter: 2012Q2

REPORT INFORMATION
  Report Type: 
  Country: None (occurrence: None)
  Receive Date: 20120628
  Receipt Date: 20120615
  Transmission Date: 20120825
  Serious: Yes (Hospitalization, Other)
  Sender: FDA-Public Use
  Company Number: 2012SP027410

PATIENT
  Age: 55 Year
  Sex: Female

DRUGS (8)
  1. RIBAVIRIN [Suspect]
     Indication: HEPATITIS C
     Dosage: PO
     Route: 048
     Dates: start: 20111214, end: 20120404
  2. ISENTRESS [Suspect]
     Indication: URTICARIA
     Dates: start: 20110622
  3. PEGASYS [Suspect]
     Indication: HEPATITIS C
     Dosage: SC
     Route: 058
     Dates: start: 20111214, end: 20120404
  4. ROCEPHIN [Concomitant]
  5. VICTRELIS [Suspect]
     Indication: HEPATITIS C
     Dosage: 1 DF; QD; PO
     Route: 048
     Dates: start: 20120130, end: 20120404
  6. TRUVADA [Concomitant]
  7. FLAGYL [Concomitant]
  8. GENTAMICIN [Concomitant]

REACTIONS (2)
  - PYELONEPHRITIS [None]
  - DRUG RASH WITH EOSINOPHILIA AND SYSTEMIC SYMPTOMS [None]
